FAERS Safety Report 5453751-4 (Version None)
Quarter: 2007Q3

REPORT INFORMATION
  Report Type: 
  Country: None (occurrence: None)
  Receive Date: 20070917
  Receipt Date: 20070910
  Transmission Date: 20080115
  Serious: Yes (Hospitalization)
  Sender: FDA-Public Use
  Company Number: FR-AVENTIS-200712537FR

PATIENT
  Age: 23 Year
  Sex: Female

DRUGS (1)
  1. RODOGYL [Suspect]
     Route: 048
     Dates: start: 20070208, end: 20070201

REACTIONS (7)
  - ASTHENIA [None]
  - HEADACHE [None]
  - HYPOAESTHESIA [None]
  - MALAISE [None]
  - NECK PAIN [None]
  - PARAPARESIS [None]
  - TREMOR [None]
